FAERS Safety Report 5926286-X (Version None)
Quarter: 2008Q4

REPORT INFORMATION
  Report Type: 
  Country: None (occurrence: None)
  Receive Date: 20081017
  Receipt Date: 20081003
  Transmission Date: 20090506
  Serious: Yes (Hospitalization)
  Sender: FDA-Public Use
  Company Number: 2008S1017949

PATIENT
  Age: 66 Year
  Sex: Male

DRUGS (8)
  1. BACLOFEN [Suspect]
     Indication: DRUG USE FOR UNKNOWN INDICATION
     Dosage: 10 MG; TWICE A DAY; ORAL
     Route: 048
     Dates: end: 20080904
  2. AMITRIPTYLINE HCL [Suspect]
     Indication: DRUG USE FOR UNKNOWN INDICATION
     Dosage: 10 MG; DAILY; ORAL
     Route: 048
     Dates: end: 20080904
  3. REMERON [Suspect]
     Indication: DRUG USE FOR UNKNOWN INDICATION
     Dosage: 30 MG; DAILY; ORAL
     Route: 048
     Dates: start: 20080829, end: 20080904
  4. ATACAND HCT [Concomitant]
  5. SIMVASTATIN [Concomitant]
  6. ZOLPIDEM [Concomitant]
  7. ALVEDON [Concomitant]
  8. WARFARIN SODIUM [Concomitant]

REACTIONS (5)
  - ABDOMINAL PAIN [None]
  - MYALGIA [None]
  - PAIN IN EXTREMITY [None]
  - SEROTONIN SYNDROME [None]
  - VOMITING [None]
